FAERS Safety Report 8909459 (Version 2)
Quarter: 2013Q1

REPORT INFORMATION
  Report Type: Spontaneous
  Country: DE (occurrence: DE)
  Receive Date: 20121115
  Receipt Date: 20130128
  Transmission Date: 20140127
  Serious: Yes (Disabling, Other)
  Sender: FDA-Public Use
  Company Number: DE-ROCHE-1155564

PATIENT
  Sex: Male
  Weight: 77 kg

DRUGS (3)
  1. ZELBORAF [Suspect]
     Indication: MALIGNANT MELANOMA
     Route: 042
     Dates: start: 20120915, end: 20121107
  2. ZELBORAF [Suspect]
     Route: 065
     Dates: start: 20121122, end: 20121130
  3. MIRTAZAPIN [Concomitant]
     Indication: INSOMNIA
     Route: 065

REACTIONS (2)
  - Uveitis [Recovered/Resolved]
  - Visual acuity reduced [Unknown]
